FAERS Safety Report 8344675-3 (Version None)
Quarter: 2012Q2

REPORT INFORMATION
  Report Type: 
  Country: None (occurrence: None)
  Receive Date: 20120508
  Receipt Date: 20120502
  Transmission Date: 20120825
  Serious: Yes (Hospitalization, Other)
  Sender: FDA-Public Use
  Company Number: CN-BAYER-2012-042339

PATIENT
  Age: 50 Year
  Sex: Female

DRUGS (1)
  1. ULTRAVIST 370 [Suspect]
     Indication: COMPUTERISED TOMOGRAM CORONARY ARTERY
     Dosage: UNK
     Dates: start: 20120101, end: 20120101

REACTIONS (4)
  - DYSPNOEA [None]
  - CONTRAST MEDIA REACTION [None]
  - SNEEZING [None]
  - CONJUNCTIVAL OEDEMA [None]
